FAERS Safety Report 5842101-7 (Version None)
Quarter: 2008Q3

REPORT INFORMATION
  Report Type: 
  Country: None (occurrence: None)
  Receive Date: 20080812
  Receipt Date: 20080730
  Transmission Date: 20090109
  Serious: Yes (Hospitalization)
  Sender: FDA-Public Use
  Company Number: RO-ROCHE-578431

PATIENT
  Age: 41 Year
  Sex: Male

DRUGS (2)
  1. PEGASYS [Suspect]
     Route: 058
     Dates: start: 20061001, end: 20070901
  2. COPEGUS [Concomitant]
     Route: 048
     Dates: start: 20061001, end: 20070901

REACTIONS (1)
  - LARYNGEAL NEOPLASM [None]
